FAERS Safety Report 8613541-8 (Version None)
Quarter: 2012Q3

REPORT INFORMATION
  Report Type: 
  Country: None (occurrence: None)
  Receive Date: 20120823
  Receipt Date: 20120808
  Transmission Date: 20120928
  Serious: Yes (Disabling, Other)
  Sender: FDA-Public Use
  Company Number: US-009507513-2012SP008466

PATIENT

DRUGS (22)
  1. POTASSIUM CHLORIDE (KV/24) [Suspect]
     Indication: BLOOD POTASSIUM
     Dosage: 8 MEQ, QD
  2. GENERLAC [Suspect]
     Indication: CROHN'S DISEASE
     Dosage: 30 MG, PRN
  3. ATENOLOL [Suspect]
     Indication: HYPERTENSION
     Dosage: 25 MG, QD
     Route: 048
  4. TYLENOL [Suspect]
     Indication: MIGRAINE
     Dosage: UNK UNK, QD
  5. ASPIRIN [Suspect]
     Indication: CHEST PAIN
     Dosage: 81 MG, PRN
  6. LANTUS [Suspect]
     Indication: DIABETES MELLITUS
     Dosage: 80 UNITS IN THE MORING AND 90 UNITS AT NIGHT
  7. LANTUS [Suspect]
     Dosage: UNK
  8. ATROPINE SULFATE [Suspect]
     Indication: CROHN'S DISEASE
     Dosage: 2.5 MG, QID
     Route: 048
  9. DEPAKOTE [Suspect]
     Indication: CONVULSION
     Dosage: 500 MG, BID
     Route: 048
  10. ATIVAN [Suspect]
     Indication: NERVOUSNESS
     Dosage: 1 MG, TID
     Route: 048
  11. ZOCOR [Suspect]
     Dosage: 40 MG, QD
     Route: 048
  12. ZANTAC [Suspect]
     Indication: GASTROOESOPHAGEAL REFLUX DISEASE
     Dosage: 30 MG, TID
     Route: 048
  13. POTASSIUM CHLORIDE [Suspect]
  14. REMERON [Suspect]
     Indication: INSOMNIA
     Dosage: 30 MG, QD
     Route: 048
  15. DILANTIN [Suspect]
     Indication: CONVULSION
     Dosage: 300 MG, BID
     Route: 048
  16. IMDUR [Suspect]
     Indication: CARDIAC DISORDER
     Dosage: 30 MG, TID
  17. METHOCARBAMOL [Suspect]
     Indication: NEUROPATHY PERIPHERAL
  18. NORVASC [Suspect]
     Indication: PALPITATIONS
     Route: 048
  19. HUMULIN R [Suspect]
     Indication: DIABETES MELLITUS
     Dosage: 24 UNITS
  20. FUROSEMIDE [Suspect]
     Indication: DIURETIC THERAPY
     Dosage: 40 MG, BID
     Route: 048
  21. METHOCARBAMOL [Suspect]
     Indication: MUSCLE SPASMS
     Dosage: 750 MG, PRN
     Route: 048
  22. NITROSTAT [Suspect]
     Indication: CHEST PAIN
     Dosage: 0.4 MG, PRN

REACTIONS (6)
  - BEDRIDDEN [None]
  - EMPHYSEMA [None]
  - AMNESIA [None]
  - LUNG DISORDER [None]
  - CHRONIC OBSTRUCTIVE PULMONARY DISEASE [None]
  - OFF LABEL USE [None]
